FAERS Safety Report 7598741-0 (Version None)
Quarter: 2011Q3

REPORT INFORMATION
  Report Type: 
  Country: None (occurrence: None)
  Receive Date: 20110711
  Receipt Date: 20110630
  Transmission Date: 20111222
  Serious: No
  Sender: FDA-Public Use
  Company Number: US-BIOGENIDEC-2010BI024533

PATIENT
  Age: 63 Year
  Sex: Male

DRUGS (3)
  1. AVONEX [Concomitant]
     Indication: MULTIPLE SCLEROSIS
     Route: 030
     Dates: start: 19990501, end: 20090731
  2. AVONEX [Concomitant]
     Route: 030
     Dates: start: 20090901
  3. TYSABRI [Suspect]
     Indication: MULTIPLE SCLEROSIS
     Route: 042
     Dates: start: 20090903

REACTIONS (5)
  - BALANCE DISORDER [None]
  - GENERAL SYMPTOM [None]
  - GAIT DISTURBANCE [None]
  - TEMPERATURE INTOLERANCE [None]
  - DEPRESSED MOOD [None]
